FAERS Safety Report 22659570 (Version 1)
Quarter: 2023Q2

REPORT INFORMATION
  Report Type: Spontaneous
  Country: US (occurrence: US)
  Receive Date: 20230630
  Receipt Date: 20230630
  Transmission Date: 20230722
  Serious: No
  Sender: FDA-Public Use
  Company Number: US-MYLANLABS-2023M1054376

PATIENT
  Sex: Female
  Weight: 63.5 kg

DRUGS (2)
  1. ESTRADIOL TRANSDERMAL SYSTEM [Suspect]
     Active Substance: ESTRADIOL
     Indication: Hormone therapy
     Dosage: 0.05 MILLIGRAM, QD (TWICE-WEEKLY)
     Route: 062
  2. ESTRADIOL TRANSDERMAL SYSTEM [Suspect]
     Active Substance: ESTRADIOL
     Dosage: 0.05 MILLIGRAM, QD (TWICE-WEEKLY)
     Route: 062

REACTIONS (4)
  - Insomnia [Unknown]
  - Anxiety [Unknown]
  - Intercepted product dispensing error [Unknown]
  - Product adhesion issue [Unknown]
